FAERS Safety Report 7377250-8 (Version None)
Quarter: 2011Q1

REPORT INFORMATION
  Report Type: 
  Country: None (occurrence: None)
  Receive Date: 20110315
  Receipt Date: 20110304
  Transmission Date: 20110831
  Serious: Yes (Hospitalization)
  Sender: FDA-Public Use
  Company Number: DAV-AE-AMP-11-002

PATIENT
  Age: 24 Year
  Sex: Female

DRUGS (2)
  1. AMPICILLIN [Suspect]
     Indication: BETA HAEMOLYTIC STREPTOCOCCAL INFECTION
     Dosage: 2 G INTRAVENOUS
     Route: 042
  2. AMPICILLIN [Suspect]
     Indication: ANTIBIOTIC PROPHYLAXIS
     Dosage: 2 G INTRAVENOUS
     Route: 042

REACTIONS (5)
  - JARISCH-HERXHEIMER REACTION [None]
  - SECONDARY SYPHILIS [None]
  - DRUG EXPOSURE DURING PREGNANCY [None]
  - TACHYCARDIA [None]
  - CAESAREAN SECTION [None]
